FAERS Safety Report 16961337 (Version 1)
Quarter: 2019Q4

REPORT INFORMATION
  Report Type: Spontaneous
  Country: US (occurrence: US)
  Receive Date: 20190906
  Receipt Date: 20190906
  Transmission Date: 20200122
  Serious: Yes (Hospitalization)
  Sender: FDA-Public Use
  Company Number: None

PATIENT
  Age: 59 Year
  Sex: Female

DRUGS (7)
  1. GABAPENTIN. [Concomitant]
     Active Substance: GABAPENTIN
  2. LEVETIRACETA [Concomitant]
  3. LEVOTHYROXIN [Concomitant]
     Active Substance: LEVOTHYROXINE
  4. ELIQUIS [Concomitant]
     Active Substance: APIXABAN
  5. ZELBORAF [Suspect]
     Active Substance: VEMURAFENIB
     Indication: PROSTATE CANCER
     Dosage: ?          OTHER FREQUENCY:Q12 HRS;?
     Route: 048
  6. A-HYDROCORT [Concomitant]
     Active Substance: HYDROCORTISONE SODIUM SUCCINATE
  7. MEGESTROL AC [Concomitant]

REACTIONS (2)
  - Loss of consciousness [None]
  - Therapy cessation [None]
